FAERS Safety Report 6099466-3 (Version None)
Quarter: 2009Q1

REPORT INFORMATION
  Report Type: 
  Country: None (occurrence: None)
  Receive Date: 20090303
  Receipt Date: 20090225
  Transmission Date: 20090719
  Serious: Yes (Other)
  Sender: FDA-Public Use
  Company Number: US-BAYER-200840959NA

PATIENT
  Age: 25 Year
  Sex: Female

DRUGS (3)
  1. YAZ [Suspect]
     Indication: CONTRACEPTION
     Route: 048
     Dates: start: 20081101, end: 20081101
  2. LEVLITE [Concomitant]
     Indication: CONTRACEPTION
     Route: 048
     Dates: start: 19910101, end: 20040101
  3. LEVLITE [Concomitant]
     Route: 048
     Dates: start: 20081201

REACTIONS (3)
  - ABASIA [None]
  - ARTHRALGIA [None]
  - MOBILITY DECREASED [None]
